FAERS Safety Report 9111377 (Version 1)
Quarter: 2013Q1

REPORT INFORMATION
  Report Type: Spontaneous
  Country: US (occurrence: US)
  Receive Date: 20130219
  Receipt Date: 20130219
  Transmission Date: 20140127
  Serious: No
  Sender: FDA-Public Use
  Company Number: US-BRISTOL-MYERS SQUIBB COMPANY-16436123

PATIENT
  Age: 54 Year
  Sex: Female
  Weight: 97 kg

DRUGS (2)
  1. ORENCIA [Suspect]
     Indication: RHEUMATOID ARTHRITIS
     Dosage: LAST INF ON 01MAR12
     Route: 042
     Dates: start: 201112
  2. METHOTREXATE [Suspect]

REACTIONS (5)
  - Injection site pain [Unknown]
  - Rash [Unknown]
  - Headache [Unknown]
  - Swelling [Recovering/Resolving]
  - Dry eye [Unknown]
